FAERS Safety Report 16687783 (Version 3)
Quarter: 2020Q1

REPORT INFORMATION
  Report Type: Spontaneous
  Country: US (occurrence: US)
  Receive Date: 20190809
  Receipt Date: 20200316
  Transmission Date: 20200409
  Serious: No
  Sender: FDA-Public Use
  Company Number: US-PFIZER INC-2019342157

PATIENT
  Age: 60 Year
  Sex: Male

DRUGS (2)
  1. LYRICA [Suspect]
     Active Substance: PREGABALIN
     Indication: NEUROPATHY PERIPHERAL
  2. LYRICA [Suspect]
     Active Substance: PREGABALIN
     Indication: PAIN IN EXTREMITY
     Dosage: 200 MG, 3X/DAY
     Dates: start: 2012

REACTIONS (2)
  - Pain [Unknown]
  - Intercepted product prescribing error [Unknown]
